FAERS Safety Report 8889163 (Version 1)
Quarter: 2012Q4

REPORT INFORMATION
  Report Type: 
  Country: FR (occurrence: FR)
  Receive Date: 20121106
  Receipt Date: 20121106
  Transmission Date: 20130627
  Serious: Yes (Hospitalization)
  Sender: FDA-Public Use
  Company Number: FR-B.I. PHARMACEUTICALS,INC./RIDGEFIELD-2012-FF-01556FF

PATIENT
  Age: 89 Year
  Sex: Female

DRUGS (3)
  1. SIFROL [Suspect]
     Indication: RESTLESS LEGS SYNDROME
     Dosage: 0.72 mg
     Route: 048
     Dates: start: 201209, end: 201210
  2. SIFROL [Suspect]
     Dosage: 0.36 mg
     Route: 048
     Dates: start: 201210
  3. CYMBALTA [Suspect]
     Indication: RESTLESS LEGS SYNDROME
     Dosage: 30 mg
     Route: 048
     Dates: start: 201209, end: 20121015

REACTIONS (1)
  - Hyponatraemia [Not Recovered/Not Resolved]
